FAERS Safety Report 5589209-1 (Version None)
Quarter: 2008Q1

REPORT INFORMATION
  Report Type: 
  Country: None (occurrence: None)
  Receive Date: 20080109
  Receipt Date: 20071222
  Transmission Date: 20080703
  Serious: Yes (Other)
  Sender: FDA-Public Use
  Company Number: ENT 2007-0147

PATIENT
  Age: 74 Year
  Sex: Female

DRUGS (4)
  1. COMTAN [Suspect]
     Indication: PARKINSON'S DISEASE
     Dosage: 600 MG (100 MG,6 IN 1 D)
     Route: 048
     Dates: start: 20070802
  2. SIFROL [Concomitant]
  3. DOPACOL [Concomitant]
  4. BOIDAN [Concomitant]

REACTIONS (2)
  - SOMNOLENCE [None]
  - SUDDEN ONSET OF SLEEP [None]
